FAERS Safety Report 4629135-5 (Version None)
Quarter: 2005Q2

REPORT INFORMATION
  Report Type: 
  Country: None (occurrence: None)
  Receive Date: 20050407
  Receipt Date: 20050325
  Transmission Date: 20051028
  Serious: Yes (Hospitalization)
  Sender: FDA-Public Use
  Company Number: 200511075FR

PATIENT
  Age: 90 Year
  Sex: Male

DRUGS (4)
  1. KETEK [Suspect]
     Indication: BRONCHITIS
     Route: 048
     Dates: start: 20050210, end: 20050214
  2. AUGMENTIN '125' [Suspect]
     Indication: BRONCHITIS
     Route: 048
     Dates: start: 20050209, end: 20050209
  3. CELESTENE [Concomitant]
     Indication: BRONCHITIS
     Route: 048
     Dates: start: 20050209, end: 20050211
  4. XYZALL                                  /AUT/ [Concomitant]
     Route: 048
     Dates: start: 20050210, end: 20050214

REACTIONS (4)
  - ACUTE GENERALISED EXANTHEMATOUS PUSTULOSIS [None]
  - EOSINOPHIL COUNT INCREASED [None]
  - NEUTROPHIL COUNT INCREASED [None]
  - RASH PUSTULAR [None]
